FAERS Safety Report 10449554 (Version 1)
Quarter: 2014Q3

REPORT INFORMATION
  Report Type: Spontaneous
  Country: US (occurrence: None)
  Receive Date: 20140911
  Receipt Date: 20140911
  Transmission Date: 20150326
  Serious: Yes (Other)
  Sender: FDA-Public Use
  Company Number: None

PATIENT
  Age: 74 Year
  Sex: Female
  Weight: 73.94 kg

DRUGS (1)
  1. BUMETANIDE 0.5 MG [Suspect]
     Active Substance: BUMETANIDE
     Indication: CARDIAC FAILURE CONGESTIVE
     Dosage: 1 PILL MON., WED., FRI. TAKEN BY MOUTH
     Route: 048
     Dates: start: 20140903, end: 20140905

REACTIONS (4)
  - Agitation [None]
  - Formication [None]
  - Dyskinesia [None]
  - Feeling abnormal [None]

NARRATIVE: CASE EVENT DATE: 20140905
